FAERS Safety Report 4886817-8 (Version None)
Quarter: 2006Q1

REPORT INFORMATION
  Report Type: 
  Country: None (occurrence: None)
  Receive Date: 20060119
  Receipt Date: 20060119
  Transmission Date: 20060701
  Serious: Yes (Hospitalization, Other)
  Sender: FDA-Public Use
  Company Number: None

PATIENT
  Age: 59 Year
  Sex: Male
  Weight: 90.7194 kg

DRUGS (13)
  1. DEXAMETHASONE [Suspect]
     Indication: CONDITION AGGRAVATED
     Dosage: 0.4 M Q 6 HRS I.V.
     Route: 042
     Dates: start: 20050818, end: 20050823
  2. DEXAMETHASONE [Suspect]
     Indication: MULTIPLE SCLEROSIS
     Dosage: 0.4 M Q 6 HRS I.V.
     Route: 042
     Dates: start: 20050818, end: 20050823
  3. AVALIDE [Concomitant]
  4. BACLOFEN [Concomitant]
  5. LEXAPRO [Concomitant]
  6. GABAPENTIN [Concomitant]
  7. AMITRIPTYLINE HCL [Concomitant]
  8. SINGULAIR [Concomitant]
  9. AMANTADINE HCL [Concomitant]
  10. PROVIGIL [Concomitant]
  11. COPAXONE [Concomitant]
  12. LOTREL [Concomitant]
  13. ALPRAZOLAM [Concomitant]

REACTIONS (17)
  - BLISTER [None]
  - CELLULITIS [None]
  - CONDITION AGGRAVATED [None]
  - DRUG DISPENSING ERROR [None]
  - FATIGUE [None]
  - HAEMATOCHEZIA [None]
  - HAEMORRHOIDS [None]
  - HYPERTENSION [None]
  - INJECTION SITE ERYTHEMA [None]
  - INJECTION SITE OEDEMA [None]
  - MALAISE [None]
  - OEDEMA PERIPHERAL [None]
  - RECTAL HAEMORRHAGE [None]
  - SKIN LESION [None]
  - URINARY INCONTINENCE [None]
  - WOUND DRAINAGE [None]
  - WRONG DRUG ADMINISTERED [None]
